FAERS Safety Report 8618832-2 (Version None)
Quarter: 2012Q3

REPORT INFORMATION
  Report Type: 
  Country: None (occurrence: None)
  Receive Date: 20120824
  Receipt Date: 20120821
  Transmission Date: 20120928
  Serious: Yes (Other)
  Sender: FDA-Public Use
  Company Number: CN-JNJFOC-20120810301

PATIENT
  Sex: Female

DRUGS (4)
  1. SPORANOX [Suspect]
     Route: 048
     Dates: start: 20120816, end: 20120817
  2. SPORANOX [Suspect]
     Indication: ONYCHOMYCOSIS
     Route: 048
     Dates: start: 20120814, end: 20120815
  3. SPORANOX [Suspect]
     Route: 048
     Dates: start: 20120818
  4. SPORANOX [Suspect]
     Route: 048
     Dates: start: 20120811, end: 20120813

REACTIONS (4)
  - CHOLECYSTITIS [None]
  - HYPERHIDROSIS [None]
  - PYREXIA [None]
  - HEADACHE [None]
